FAERS Safety Report 9518577 (Version 1)
Quarter: 2013Q3

REPORT INFORMATION
  Report Type: Spontaneous
  Country: US (occurrence: US)
  Receive Date: 20130912
  Receipt Date: 20130912
  Transmission Date: 20140515
  Serious: No
  Sender: FDA-Public Use
  Company Number: US-009507513-1308USA014345

PATIENT
  Age: 26 Year
  Sex: 0
  Weight: 113.83 kg

DRUGS (1)
  1. NEXPLANON [Suspect]
     Indication: CONTRACEPTION
     Dosage: 68 MG, UNK
     Route: 059
     Dates: start: 20130823, end: 20130827

REACTIONS (2)
  - Device kink [Recovered/Resolved]
  - No adverse event [Unknown]
